FAERS Safety Report 7680771-1 (Version None)
Quarter: 2011Q3

REPORT INFORMATION
  Report Type: 
  Country: None (occurrence: None)
  Receive Date: 20110812
  Receipt Date: 20110804
  Transmission Date: 20111222
  Serious: Yes (Other)
  Sender: FDA-Public Use
  Company Number: US-BAYER-201034397NA

PATIENT
  Age: 37 Year
  Sex: Female
  Weight: 108.84 kg

DRUGS (4)
  1. CITALOPRAM HYDROBROMIDE [Concomitant]
     Indication: DEPRESSION
     Dosage: 20 MG, QD
     Route: 048
     Dates: start: 20080122
  2. NAPROXEN [Concomitant]
     Indication: PAIN
     Dosage: 500 MG, BID
     Route: 048
     Dates: start: 20080612
  3. YASMIN [Suspect]
     Indication: CONTRACEPTION
     Dosage: UNK
     Route: 048
     Dates: start: 20080312, end: 20080501
  4. YASMIN [Suspect]
     Indication: PREMENSTRUAL SYNDROME

REACTIONS (3)
  - PULMONARY EMBOLISM [None]
  - CHOLECYSTECTOMY [None]
  - DEEP VEIN THROMBOSIS [None]
